FAERS Safety Report 7104875-7 (Version None)
Quarter: 2010Q4

REPORT INFORMATION
  Report Type: 
  Country: None (occurrence: None)
  Receive Date: 20101110
  Receipt Date: 20101029
  Transmission Date: 20110411
  Serious: Yes (Hospitalization)
  Sender: FDA-Public Use
  Company Number: UTC-001862

PATIENT
  Age: 55 Year
  Sex: Female
  Weight: 98 kg

DRUGS (2)
  1. REMODULIN [Suspect]
     Dosage: INTRAVENOUS
     Route: 042
     Dates: start: 20091117
  2. TRACLEER [Concomitant]

REACTIONS (3)
  - DEVICE RELATED INFECTION [None]
  - PNEUMONIA [None]
  - SEPSIS [None]
